FAERS Safety Report 7284121-4 (Version None)
Quarter: 2011Q1

REPORT INFORMATION
  Report Type: 
  Country: None (occurrence: None)
  Receive Date: 20110209
  Receipt Date: 20110131
  Transmission Date: 20110831
  Serious: Yes (Hospitalization, Other)
  Sender: FDA-Public Use
  Company Number: PHHY2010DE84976

PATIENT
  Sex: Male
  Weight: 88 kg

DRUGS (1)
  1. ZOMETA [Suspect]
     Indication: METASTASES TO BONE
     Dosage: 4 MG FOR EVERY 3-4 WEEKS
     Route: 042
     Dates: start: 20080916, end: 20101022

REACTIONS (4)
  - LOCAL SWELLING [None]
  - PAIN [None]
  - ERYTHEMA [None]
  - OSTEONECROSIS OF JAW [None]
